FAERS Safety Report 25724509 (Version 2)
Quarter: 2025Q3

REPORT INFORMATION
  Report Type: Spontaneous
  Country: EU (occurrence: EU)
  Receive Date: 20250826
  Receipt Date: 20250905
  Transmission Date: 20251021
  Serious: Yes (Hospitalization, Disabling, Other)
  Sender: HIKMA
  Company Number: None

PATIENT
  Age: 93 Year
  Sex: Male
  Weight: 90 kg

DRUGS (1)
  1. VANCOMYCIN HYDROCHLORIDE [Suspect]
     Active Substance: VANCOMYCIN HYDROCHLORIDE
     Indication: Decubitus ulcer
     Dosage: 1250 MILLIGRAM, Q12H
     Route: 042
     Dates: start: 20250711, end: 20250713

REACTIONS (2)
  - Pancytopenia [Recovering/Resolving]
  - Acute kidney injury [Recovering/Resolving]

NARRATIVE: CASE EVENT DATE: 20250711
